FAERS Safety Report 14219010 (Version 2)
Quarter: 2023Q2

REPORT INFORMATION
  Report Type: Spontaneous
  Country: US (occurrence: US)
  Receive Date: 20171123
  Receipt Date: 20230403
  Transmission Date: 20230722
  Serious: Yes (Other)
  Sender: FDA-Public Use
  Company Number: US-JNJFOC-20171011491

PATIENT
  Age: 3 Decade
  Sex: Male

DRUGS (3)
  1. RISPERIDONE [Suspect]
     Active Substance: RISPERIDONE
     Indication: Product used for unknown indication
     Route: 048
     Dates: start: 20111111, end: 20120816
  2. RISPERDAL [Suspect]
     Active Substance: RISPERIDONE
     Indication: Psychotic disorder
     Dosage: EVERY NIGHT TIME
     Route: 048
     Dates: start: 20120104
  3. RISPERDAL [Suspect]
     Active Substance: RISPERIDONE
     Dosage: EVERY NIGHT TIME
     Route: 048
     Dates: start: 20120109

REACTIONS (2)
  - Gynaecomastia [Unknown]
  - Emotional disorder [Unknown]
